FAERS Safety Report 8066434-1 (Version None)
Quarter: 2012Q1

REPORT INFORMATION
  Report Type: 
  Country: None (occurrence: None)
  Receive Date: 20120124
  Receipt Date: 20120120
  Transmission Date: 20120608
  Serious: Yes (Hospitalization)
  Sender: FDA-Public Use
  Company Number: US-VERTEX PHARMACEUTICALS INC.-AE-2012-001170

PATIENT
  Sex: Female
  Weight: 63.56 kg

DRUGS (6)
  1. METOPROLOL TARTRATE [Concomitant]
  2. COZAAR [Concomitant]
  3. INCIVEK [Suspect]
     Indication: HEPATITIS C
     Route: 048
     Dates: start: 20111015, end: 20120108
  4. PEGASYS [Concomitant]
     Indication: HEPATITIS C
     Route: 058
     Dates: start: 20111015
  5. RIBAVIRIN [Concomitant]
     Indication: HEPATITIS C
     Route: 048
     Dates: start: 20111015
  6. PLAVIX [Concomitant]

REACTIONS (3)
  - DEHYDRATION [None]
  - DYSPNOEA [None]
  - ANAEMIA [None]
